FAERS Safety Report 10211684 (Version 4)
Quarter: 2015Q2

REPORT INFORMATION
  Report Type: Spontaneous
  Country: US (occurrence: None)
  Receive Date: 20140528
  Receipt Date: 20150413
  Transmission Date: 20150821
  Serious: Yes (Hospitalization)
  Sender: FDA-Public Use
  Company Number: UNT-2014-000845

PATIENT
  Age: 70 Year
  Sex: Female
  Weight: 52.6 kg

DRUGS (4)
  1. REVATIO [Concomitant]
     Active Substance: SILDENAFIL CITRATE
  2. REMODULIN [Suspect]
     Active Substance: TREPROSTINIL
     Indication: PULMONARY ARTERIAL HYPERTENSION
     Dosage: 0.06 UG/KG, CONTINUING, IV DRIP
     Route: 041
     Dates: start: 20140110
  3. WARFARIN [Concomitant]
     Active Substance: WARFARIN
  4. LETAIRIS [Concomitant]
     Active Substance: AMBRISENTAN

REACTIONS (3)
  - Hysterectomy [None]
  - Endometrial cancer stage III [None]
  - Cognitive disorder [None]

NARRATIVE: CASE EVENT DATE: 20140507
